FAERS Safety Report 8394035-4 (Version None)
Quarter: 2012Q2

REPORT INFORMATION
  Report Type: 
  Country: None (occurrence: None)
  Receive Date: 20120530
  Receipt Date: 20120521
  Transmission Date: 20120825
  Serious: Yes (Other)
  Sender: FDA-Public Use
  Company Number: US-JNJFOC-20120517269

PATIENT
  Sex: Female
  Weight: 68.04 kg

DRUGS (10)
  1. FENTANYL-100 [Suspect]
     Indication: PAIN
     Route: 062
  2. FENTANYL-100 [Suspect]
     Route: 062
  3. MORPHINE [Suspect]
     Indication: PAIN
     Route: 048
     Dates: start: 20120517
  4. DURAGESIC-100 [Suspect]
     Indication: PAIN
     Route: 062
  5. DURAGESIC-100 [Suspect]
     Route: 062
     Dates: start: 20020101
  6. DURAGESIC-100 [Suspect]
     Route: 062
  7. FENTANYL-100 [Suspect]
     Indication: PAIN
     Route: 062
  8. LORTAB [Concomitant]
     Indication: BREAKTHROUGH PAIN
     Route: 048
  9. DURAGESIC-100 [Suspect]
     Route: 062
     Dates: end: 20110101
  10. DURAGESIC-100 [Suspect]
     Route: 062
     Dates: start: 20110101, end: 20120517

REACTIONS (9)
  - CATARACT [None]
  - BACK DISORDER [None]
  - WEIGHT INCREASED [None]
  - VISION BLURRED [None]
  - DERMATITIS CONTACT [None]
  - PRURITUS [None]
  - INJURY [None]
  - URTICARIA [None]
  - POST-TRAUMATIC NECK SYNDROME [None]
